FAERS Safety Report 13524483 (Version 1)
Quarter: 2017Q2

REPORT INFORMATION
  Report Type: Report from Study
  Country: HK (occurrence: HK)
  Receive Date: 20170508
  Receipt Date: 20170508
  Transmission Date: 20170830
  Serious: Yes (Hospitalization, Other)
  Sender: FDA-Public Use
  Company Number: HK-BRISTOL-MYERS SQUIBB COMPANY-BMS-2017-040074

PATIENT

DRUGS (1)
  1. TRIAMCINOLONE ACETONIDE. [Suspect]
     Active Substance: TRIAMCINOLONE ACETONIDE
     Indication: DIABETIC RETINAL OEDEMA
     Dosage: 40 UNK, UNK
     Route: 050

REACTIONS (4)
  - Non-infectious endophthalmitis [Recovered/Resolved with Sequelae]
  - Vitreous haemorrhage [Unknown]
  - Product use issue [Unknown]
  - Product use in unapproved indication [Unknown]
